FAERS Safety Report 7288701-1 (Version None)
Quarter: 2011Q1

REPORT INFORMATION
  Report Type: 
  Country: None (occurrence: None)
  Receive Date: 20110201
  Receipt Date: 20110119
  Transmission Date: 20110831
  Serious: Yes (Other)
  Sender: FDA-Public Use
  Company Number: 811005

PATIENT
  Age: 72 Year
  Sex: Female

DRUGS (5)
  1. LEVOTHYROXINE SODIUM [Concomitant]
  2. (ACICLOVIR) [Suspect]
     Indication: HERPES ZOSTER
     Dosage: 800 MG MILLIGRAM(S)
     Dates: start: 20101125
  3. AMLODIPINE [Concomitant]
  4. (PARACETAMOL) [Concomitant]
  5. TRAMADOL HCL [Suspect]
     Indication: HERPES ZOSTER
     Dosage: 50 MG MILLIGRAM(S)
     Dates: start: 20101125

REACTIONS (9)
  - NIGHT SWEATS [None]
  - HALLUCINATIONS, MIXED [None]
  - BLOOD PRESSURE INCREASED [None]
  - INSOMNIA [None]
  - ALOPECIA [None]
  - TREATMENT NONCOMPLIANCE [None]
  - MALAISE [None]
  - HERPES ZOSTER [None]
  - SYNCOPE [None]
